FAERS Safety Report 5663252-6 (Version None)
Quarter: 2008Q1

REPORT INFORMATION
  Report Type: 
  Country: None (occurrence: None)
  Receive Date: 20080311
  Receipt Date: 20080311
  Transmission Date: 20080703
  Serious: No
  Sender: FDA-Public Use
  Company Number: None

PATIENT
  Age: 81 Year
  Sex: Male

DRUGS (1)
  1. FENTANYL [Suspect]
     Dosage: 150MCG Q72HRS TRANSDERMAL
     Route: 062

REACTIONS (3)
  - AGITATION [None]
  - CONFUSIONAL STATE [None]
  - HALLUCINATION [None]
